FAERS Safety Report 10903708 (Version 1)
Quarter: 2015Q1

REPORT INFORMATION
  Report Type: Spontaneous
  Country: US (occurrence: None)
  Receive Date: 20150304
  Receipt Date: 20150304
  Transmission Date: 20150721
  Serious: Yes (Death)
  Sender: FDA-Public Use
  Company Number: None

PATIENT
  Age: 70 Year
  Sex: Male
  Weight: 57.15 kg

DRUGS (2)
  1. CETUXIMAB [Suspect]
     Active Substance: CETUXIMAB
     Indication: HEAD AND NECK CANCER
     Dosage: C1D1-2/3/15, C1D8-2/24/15, 400+250MG/M2, IV (SUMMARY)?
     Route: 042
     Dates: end: 20150209
  2. ERIBULIN [Suspect]
     Active Substance: ERIBULIN
     Indication: NEOPLASM MALIGNANT
     Dosage: THERAPY DATES: C1D1-2/9/15, 1.4MG/M2, IV (SEE SUMMARY)?
     Route: 042
     Dates: end: 20150209

REACTIONS (6)
  - Febrile neutropenia [None]
  - Sputum discoloured [None]
  - Unresponsive to stimuli [None]
  - Fatigue [None]
  - Dyspnoea [None]
  - Upper respiratory tract infection [None]

NARRATIVE: CASE EVENT DATE: 20150228
